FAERS Safety Report 20477109 (Version 2)
Quarter: 2023Q2

REPORT INFORMATION
  Report Type: Spontaneous
  Country: SE (occurrence: SE)
  Receive Date: 20220215
  Receipt Date: 20230616
  Transmission Date: 20230722
  Serious: Yes (Other)
  Sender: FDA-Public Use
  Company Number: SE-SA-SAC20220214000185

PATIENT
  Age: 83 Year
  Sex: Male

DRUGS (1)
  1. LIBTAYO [Suspect]
     Active Substance: CEMIPLIMAB-RWLC
     Indication: Product used for unknown indication
     Dates: start: 20220124

REACTIONS (11)
  - Oedema peripheral [Unknown]
  - Electrocardiogram QRS complex [Unknown]
  - Bundle branch block right [Unknown]
  - Troponin abnormal [Unknown]
  - Blood creatine phosphokinase MB abnormal [Unknown]
  - Brain natriuretic peptide abnormal [Unknown]
  - Hepatitis [Unknown]
  - Myasthenia gravis [Unknown]
  - Myocarditis [Unknown]
  - Immune-mediated adverse reaction [Unknown]
  - Myopathy [Unknown]
